FAERS Safety Report 9850685 (Version 2)
Quarter: 2014Q1

REPORT INFORMATION
  Report Type: Spontaneous
  Country: CA (occurrence: CA)
  Receive Date: 20140128
  Receipt Date: 20140128
  Transmission Date: 20141002
  Serious: Yes (Death, Hospitalization, Other)
  Sender: FDA-Public Use
  Company Number: CA-BAXTER-2013BAX051361

PATIENT
  Age: 80 Year
  Sex: Male

DRUGS (1)
  1. DIANEAL PD4 SOLUTION WITH 1.5% DEXTROSE AND 2.5 MEQ/L CALCIUM [Suspect]
     Indication: PERITONEAL DIALYSIS
     Route: 033
     Dates: start: 2007, end: 20140106

REACTIONS (6)
  - Neoplasm malignant [Fatal]
  - Pneumonia [Not Recovered/Not Resolved]
  - Haemoglobin abnormal [Unknown]
  - General physical health deterioration [Unknown]
  - Multimorbidity [Unknown]
  - Abdominal discomfort [Unknown]
